FAERS Safety Report 20291588 (Version 1)
Quarter: 2022Q1

REPORT INFORMATION
  Report Type: Spontaneous
  Country: CA (occurrence: CA)
  Receive Date: 20220104
  Receipt Date: 20220104
  Transmission Date: 20220423
  Serious: Yes (Hospitalization)
  Sender: FDA-Public Use
  Company Number: CA-TEVA-2021-CA-1995087

PATIENT
  Age: 48 Year
  Sex: Male
  Weight: 84 kg

DRUGS (23)
  1. DOXORUBICIN HYDROCHLORIDE [Suspect]
     Active Substance: DOXORUBICIN HYDROCHLORIDE
     Indication: Burkitt^s lymphoma
     Route: 065
  2. VINCRISTINE SULFATE [Suspect]
     Active Substance: VINCRISTINE SULFATE
     Indication: Burkitt^s lymphoma
     Route: 065
  3. CYCLOPHOSPHAMIDE [Suspect]
     Active Substance: CYCLOPHOSPHAMIDE
     Indication: Burkitt^s lymphoma
     Route: 065
  4. CYCLOPHOSPHAMIDE [Suspect]
     Active Substance: CYCLOPHOSPHAMIDE
     Route: 065
  5. ACETAMINOPHEN [Concomitant]
     Active Substance: ACETAMINOPHEN
  6. BACLOFEN [Concomitant]
     Active Substance: BACLOFEN
  7. DYMISTA [Concomitant]
     Active Substance: AZELASTINE HYDROCHLORIDE\FLUTICASONE PROPIONATE
  8. ENOXAPARIN [Concomitant]
     Active Substance: ENOXAPARIN
  9. FILGRASTIM [Concomitant]
     Active Substance: FILGRASTIM
  10. JUBLIA [Concomitant]
     Active Substance: EFINACONAZOLE
  11. LORAZEPAM [Concomitant]
     Active Substance: LORAZEPAM
     Route: 065
  12. MAGNESIUM [Concomitant]
     Active Substance: MAGNESIUM
  13. METROGEL [Concomitant]
     Active Substance: METRONIDAZOLE
  14. MONTELUKAST [Concomitant]
     Active Substance: MONTELUKAST SODIUM
  15. MORPHINE [Concomitant]
     Active Substance: MORPHINE
  16. PANTOPRAZOLE [Concomitant]
     Active Substance: PANTOPRAZOLE
  17. PREDNISONE [Concomitant]
     Active Substance: PREDNISONE
  18. PREGABALIN [Concomitant]
     Active Substance: PREGABALIN
  19. PROCHLORPERAZINE [Concomitant]
     Active Substance: PROCHLORPERAZINE
  20. RANITIDINE [Concomitant]
     Active Substance: RANITIDINE
  21. RUPATADINE [Concomitant]
     Active Substance: RUPATADINE
  22. SODIUM BICARBONATE [Concomitant]
     Active Substance: SODIUM BICARBONATE
  23. CARBOXYMETHYLCELLULOSE SODIUM [Concomitant]
     Active Substance: CARBOXYMETHYLCELLULOSE SODIUM

REACTIONS (1)
  - Febrile neutropenia [Recovered/Resolved]
